FAERS Safety Report 14215752 (Version 2)
Quarter: 2017Q4

REPORT INFORMATION
  Report Type: Report from Study
  Country: PA (occurrence: PA)
  Receive Date: 20171122
  Receipt Date: 20171213
  Transmission Date: 20180321
  Serious: Yes (Hospitalization)
  Sender: FDA-Public Use
  Company Number: PHHY2016PA111994

PATIENT
  Sex: Female

DRUGS (6)
  1. PHENOBARBITAL. [Concomitant]
     Active Substance: PHENOBARBITAL
     Indication: PRODUCT USED FOR UNKNOWN INDICATION
     Dosage: 1 DF, BID
     Route: 048
  2. INSULIN [Concomitant]
     Active Substance: INSULIN NOS
     Dosage: UNK
     Route: 042
     Dates: start: 20171026
  3. INSULIN [Concomitant]
     Active Substance: INSULIN NOS
     Indication: PRODUCT USED FOR UNKNOWN INDICATION
     Dosage: FAST INSULIN 25U, QD
     Route: 058
  4. SANDOSTATIN LAR DEPOT [Suspect]
     Active Substance: OCTREOTIDE ACETATE
     Indication: ACROMEGALY
     Dosage: 20 MG, QMO (EACH MONTH)
     Route: 030
     Dates: start: 2014
  5. SANDOSTATIN LAR DEPOT [Suspect]
     Active Substance: OCTREOTIDE ACETATE
     Dosage: UNK
     Route: 030
     Dates: start: 20171113
  6. INSULIN [Concomitant]
     Active Substance: INSULIN NOS
     Dosage: SLOW INSULIN 48U QD
     Route: 058

REACTIONS (9)
  - Blood glucose increased [Unknown]
  - Visual impairment [Unknown]
  - Arthralgia [Unknown]
  - Choking sensation [Unknown]
  - Flatulence [Unknown]
  - Rhinitis [Unknown]
  - Rhinorrhoea [Recovered/Resolved]
  - Neoplasm [Unknown]
  - Diarrhoea [Unknown]
